FAERS Safety Report 6490894-0 (Version None)
Quarter: 2009Q4

REPORT INFORMATION
  Report Type: 
  Country: None (occurrence: None)
  Receive Date: 20091211
  Receipt Date: 20091202
  Transmission Date: 20100525
  Serious: Yes (Other)
  Sender: FDA-Public Use
  Company Number: GB-WATSON-2009-10385

PATIENT
  Age: 54 Year
  Sex: Male

DRUGS (2)
  1. FLUOXETINE HCL [Suspect]
     Indication: DEPRESSION
     Dosage: 20 MG, DAILY
  2. METOPROLOL (WATSON LABORATORIES) [Suspect]
     Indication: ANGINA PECTORIS
     Dosage: 100 MG, DAILY

REACTIONS (3)
  - BRADYCARDIA [None]
  - DRUG INTERACTION [None]
  - LETHARGY [None]
